FAERS Safety Report 6161876-3 (Version None)
Quarter: 2009Q2

REPORT INFORMATION
  Report Type: 
  Country: None (occurrence: None)
  Receive Date: 20090421
  Receipt Date: 20090417
  Transmission Date: 20091009
  Serious: Yes (Other)
  Sender: FDA-Public Use
  Company Number: B0456784B

PATIENT
  Sex: Male
  Weight: 76 kg

DRUGS (6)
  1. ROSIGLITAZONE [Suspect]
     Indication: TYPE 2 DIABETES MELLITUS
     Dosage: 4MG PER DAY
     Dates: start: 20021111, end: 20071023
  2. METFORMIN HCL [Suspect]
     Indication: DIABETES MELLITUS
     Route: 048
     Dates: start: 20030715
  3. GLICLAZIDE [Concomitant]
     Indication: TYPE 2 DIABETES MELLITUS
     Dosage: 160MG PER DAY
     Route: 048
  4. GLUCOPHAGE [Concomitant]
     Dates: start: 20030715
  5. SALOSPIR [Concomitant]
     Indication: HYPERTENSION
     Dosage: 100MG PER DAY
     Route: 048
     Dates: start: 20011001
  6. ACCUPRON [Concomitant]
     Indication: HYPERTENSION
     Route: 048

REACTIONS (1)
  - ALBUMINURIA [None]
